FAERS Safety Report 17094377 (Version 1)
Quarter: 2019Q4

REPORT INFORMATION
  Report Type: Spontaneous
  Country: US (occurrence: US)
  Receive Date: 20191129
  Receipt Date: 20191129
  Transmission Date: 20200122
  Serious: Yes (Other)
  Sender: FDA-Public Use
  Company Number: US-TEVA-2019-US-1142948

PATIENT
  Age: 41 Year
  Sex: Female

DRUGS (1)
  1. SPRINTEC [Suspect]
     Active Substance: ETHINYL ESTRADIOL\NORGESTIMATE
     Indication: CONTRACEPTION
     Dosage: DOSE STRENGTH:  0.250 MG/0.035 MG
     Route: 065
     Dates: start: 20190817

REACTIONS (6)
  - Feeling abnormal [Unknown]
  - Nausea [Not Recovered/Not Resolved]
  - Headache [Unknown]
  - Mood altered [Unknown]
  - Asthenia [Unknown]
  - Major depression [Unknown]

NARRATIVE: CASE EVENT DATE: 20190831
